FAERS Safety Report 15351288 (Version 2)
Quarter: 2018Q3

REPORT INFORMATION
  Report Type: Spontaneous
  Country: US (occurrence: US)
  Receive Date: 20180905
  Receipt Date: 20180907
  Transmission Date: 20181010
  Serious: Yes (Other)
  Sender: FDA-Public Use
  Company Number: US-PFIZER INC-2018352014

PATIENT
  Age: 72 Year
  Sex: Female
  Weight: 78.91 kg

DRUGS (2)
  1. XANAX [Suspect]
     Active Substance: ALPRAZOLAM
     Indication: AGGRESSION
     Dosage: UNK
  2. MARINOL [ALLOPURINOL] [Concomitant]
     Dosage: UNK

REACTIONS (3)
  - Feeding disorder [Recovered/Resolved]
  - Dyskinesia [Recovered/Resolved]
  - Loss of consciousness [Recovered/Resolved]
